FAERS Safety Report 25192369 (Version 1)
Quarter: 2025Q2

REPORT INFORMATION
  Report Type: Other
  Country: IT (occurrence: IT)
  Receive Date: 20250414
  Receipt Date: 20250414
  Transmission Date: 20250716
  Serious: Yes (Other)
  Sender: LYNE LABORATORIES
  Company Number: IT-Lyne Laboratories Inc.-2174812

PATIENT
  Age: 71 Year
  Sex: Female

DRUGS (3)
  1. DEXAMETHASONE [Suspect]
     Active Substance: DEXAMETHASONE
     Indication: POEMS syndrome
  2. DARATUMUMAB [Suspect]
     Active Substance: DARATUMUMAB
  3. LENALIDOMIDE [Suspect]
     Active Substance: LENALIDOMIDE

REACTIONS (3)
  - Neutropenia [Unknown]
  - Product use in unapproved indication [Unknown]
  - Haematotoxicity [Unknown]
